FAERS Safety Report 21258504 (Version 4)
Quarter: 2022Q3

REPORT INFORMATION
  Report Type: Spontaneous
  Country: US (occurrence: None)
  Receive Date: 20220826
  Receipt Date: 20220930
  Transmission Date: 20221027
  Serious: Yes (Hospitalization, Other)
  Sender: FDA-Public Use
  Company Number: US-ARIS GLOBAL-202204-0616

PATIENT
  Age: 86 Year
  Sex: Female

DRUGS (20)
  1. OXERVATE [Suspect]
     Active Substance: CENEGERMIN-BKBJ
     Indication: Neurotrophic keratopathy
     Route: 047
     Dates: start: 20220401, end: 20220811
  2. XANAX [Concomitant]
     Active Substance: ALPRAZOLAM
  3. FIORICET [Concomitant]
     Active Substance: ACETAMINOPHEN\BUTALBITAL\CAFFEINE
     Dosage: 50-300-40
  4. ELIQUIS [Concomitant]
     Active Substance: APIXABAN
  5. LYRICA [Concomitant]
     Active Substance: PREGABALIN
  6. MOXIFLOXACIN [Concomitant]
     Active Substance: MOXIFLOXACIN
  7. PREDNISOLONE/NEPAFENAC [Concomitant]
  8. REFRESH OPTIVE MEGA-3 [Concomitant]
     Active Substance: CARBOXYMETHYLCELLULOSE SODIUM\GLYCERIN\POLYSORBATE 80
  9. LASTACAFT [Concomitant]
     Active Substance: ALCAFTADINE
  10. RETAINE MGD [Concomitant]
     Active Substance: LIGHT MINERAL OIL\MINERAL OIL
     Dosage: 0.5 %-0.5%
  11. RESTASIS [Concomitant]
     Active Substance: CYCLOSPORINE
     Indication: Dry eye
     Dosage: BOTH EYES.
  12. AMIODARONE HYDROCHLORIDE [Concomitant]
     Active Substance: AMIODARONE HYDROCHLORIDE
  13. STIMULEYES [Concomitant]
     Indication: Dry eye
     Dosage: BOTH EYES
  14. PREDNISOLONE [Concomitant]
     Active Substance: PREDNISOLONE
     Dosage: LEFT EYE
  15. LEVOTHYROXINE [Concomitant]
     Active Substance: LEVOTHYROXINE
  16. PRAVASTATIN SODIUM [Concomitant]
     Active Substance: PRAVASTATIN SODIUM
  17. LEVOCETIRIZINE DIHYDROCHLORIDE [Concomitant]
     Active Substance: LEVOCETIRIZINE DIHYDROCHLORIDE
  18. DOXYCYCLINE HYCLATE [Concomitant]
     Active Substance: DOXYCYCLINE HYCLATE
  19. APPETITE STIMULANT [Concomitant]
  20. HYDROEYES [Concomitant]

REACTIONS (11)
  - COVID-19 pneumonia [Unknown]
  - Dry eye [Unknown]
  - Eye discharge [Not Recovered/Not Resolved]
  - Eye pain [Not Recovered/Not Resolved]
  - Eye irritation [Unknown]
  - Chalazion [Recovered/Resolved]
  - Decreased appetite [Not Recovered/Not Resolved]
  - Weight decreased [Not Recovered/Not Resolved]
  - Eye inflammation [Recovering/Resolving]
  - Migraine [Unknown]
  - Rhinitis [Recovered/Resolved with Sequelae]

NARRATIVE: CASE EVENT DATE: 20220418
